FAERS Safety Report 12523191 (Version 1)
Quarter: 2016Q3

REPORT INFORMATION
  Report Type: Spontaneous
  Country: GB (occurrence: GB)
  Receive Date: 20160702
  Receipt Date: 20160702
  Transmission Date: 20161109
  Serious: Yes (Other)
  Sender: FDA-Public Use
  Company Number: GB-SCIEGEN PHARMACEUTICALS INC-2016SCILIT00257

PATIENT
  Age: 37 Year
  Sex: Female

DRUGS (1)
  1. CLOPIDOGREL [Suspect]
     Active Substance: CLOPIDOGREL BISULFATE
     Indication: PRODUCT USED FOR UNKNOWN INDICATION
     Dosage: 75 MG/DAY
     Route: 065

REACTIONS (5)
  - Lupus endocarditis [Unknown]
  - Splinter haemorrhages [Unknown]
  - Dyspnoea [Unknown]
  - Rash maculo-papular [Unknown]
  - Systemic lupus erythematosus [Unknown]
